FAERS Safety Report 6395593-1 (Version None)
Quarter: 2009Q4

REPORT INFORMATION
  Report Type: 
  Country: None (occurrence: None)
  Receive Date: 20091009
  Receipt Date: 20091006
  Transmission Date: 20100525
  Serious: Yes (Life-Threatening, Other)
  Sender: FDA-Public Use
  Company Number: AU-BRISTOL-MYERS SQUIBB COMPANY-14807101

PATIENT
  Age: 78 Year
  Sex: Male
  Weight: 88 kg

DRUGS (10)
  1. AVAPRO [Suspect]
     Route: 048
  2. METOPROLOL TARTRATE [Interacting]
     Dosage: TABLET
     Route: 048
  3. CIALIS [Interacting]
     Dosage: TABS
     Route: 048
  4. NITROLINGUAL [Interacting]
  5. CARTIA XT [Concomitant]
     Dosage: TAB
     Route: 048
  6. CLOPIDOGREL BISULFATE [Concomitant]
     Dosage: TABS
     Route: 048
  7. NAPROXEN [Concomitant]
  8. OROXINE [Concomitant]
     Dosage: TABLET
     Route: 048
  9. ZOCOR [Concomitant]
     Dosage: TABLET
     Route: 048
  10. ASPIRIN [Concomitant]

REACTIONS (2)
  - ACUTE MYOCARDIAL INFARCTION [None]
  - DRUG INTERACTION [None]
